FAERS Safety Report 4449767-7 (Version None)
Quarter: 2004Q3

REPORT INFORMATION
  Report Type: 
  Country: None (occurrence: None)
  Receive Date: 20040914
  Receipt Date: 20040831
  Transmission Date: 20050211
  Serious: Yes (Hospitalization)
  Sender: FDA-Public Use
  Company Number: 2004UW14182

PATIENT
  Age: 87 Year
  Sex: Female
  Weight: 68.0396 kg

DRUGS (4)
  1. CRESTOR [Suspect]
     Indication: HYPERLIPIDAEMIA
     Dosage: 10 MG DAILY PO
     Route: 048
     Dates: start: 20040514, end: 20040628
  2. SYNTHROID [Concomitant]
  3. ATENOLOL [Concomitant]
  4. PROTONIX [Concomitant]

REACTIONS (6)
  - BLOOD CREATINE PHOSPHOKINASE INCREASED [None]
  - DIFFICULTY IN WALKING [None]
  - DYSKINESIA [None]
  - FALL [None]
  - MICROANGIOPATHY [None]
  - NEUROLOGICAL SYMPTOM [None]
